FAERS Safety Report 24441714 (Version 2)
Quarter: 2024Q4

REPORT INFORMATION
  Report Type: Report from Study
  Country: JP (occurrence: JP)
  Receive Date: 20241016
  Receipt Date: 20241017
  Transmission Date: 20250115
  Serious: No
  Sender: ROCHE
  Company Number: JP-CHUGAI-2021024742

PATIENT
  Sex: Male

DRUGS (3)
  1. HEMLIBRA [Suspect]
     Active Substance: EMICIZUMAB-KXWH
     Indication: Haemophilia A with anti factor VIII
     Dosage: 6 MILLIGRAM/KILOGRAM, ONCE/4WEEKS
     Route: 058
     Dates: start: 20210927
  2. HEMLIBRA [Suspect]
     Active Substance: EMICIZUMAB-KXWH
     Dosage: 97.5 MILLIGRAM, ONCE/4WEEKS
     Route: 058
     Dates: start: 20231024
  3. KOVALTRY [Concomitant]
     Active Substance: ANTIHEMOPHILIC FACTOR, HUMAN RECOMBINANT
     Dosage: 50 INTERNATIONAL UNIT/KILOGRAM, TIW

REACTIONS (10)
  - Fall [Unknown]
  - Head injury [Recovered/Resolved]
  - Rhinitis allergic [Recovered/Resolved]
  - Contusion [Recovered/Resolved]
  - Injury [Recovered/Resolved]
  - Gastroenteritis [Recovered/Resolved]
  - Bronchitis [Recovered/Resolved]
  - Hand-foot-and-mouth disease [Recovered/Resolved]
  - Eczema [Recovered/Resolved]
  - Off label use [Unknown]

NARRATIVE: CASE EVENT DATE: 20211016
